FAERS Safety Report 6942077-5 (Version None)
Quarter: 2010Q3

REPORT INFORMATION
  Report Type: 
  Country: None (occurrence: None)
  Receive Date: 20100823
  Receipt Date: 20100810
  Transmission Date: 20110219
  Serious: Yes (Hospitalization)
  Sender: FDA-Public Use
  Company Number: CLOF-10226

PATIENT
  Age: 5 Year
  Sex: Male
  Weight: 18.2 kg

DRUGS (10)
  1. CLOFARABINE (CLOFARABINE) [Suspect]
     Indication: ACUTE LYMPHOCYTIC LEUKAEMIA
     Dosage: 15 MG, QDX5, INTRAVENOUS; 16 MG, QDX5, INTRAVENOUS
     Route: 042
     Dates: start: 20060311, end: 20060315
  2. CLOFARABINE (CLOFARABINE) [Suspect]
     Indication: ACUTE LYMPHOCYTIC LEUKAEMIA
     Dosage: 15 MG, QDX5, INTRAVENOUS; 16 MG, QDX5, INTRAVENOUS
     Route: 042
     Dates: start: 20060408, end: 20060412
  3. ETOPOSIDE [Suspect]
     Indication: ACUTE LYMPHOCYTIC LEUKAEMIA
     Dosage: 56 MG, QDX5, INTRAVENOUS; 59 MG, INTRAVENOUS
     Route: 042
     Dates: start: 20060311, end: 20060315
  4. ETOPOSIDE [Suspect]
     Indication: ACUTE LYMPHOCYTIC LEUKAEMIA
     Dosage: 56 MG, QDX5, INTRAVENOUS; 59 MG, INTRAVENOUS
     Route: 042
     Dates: start: 20060408, end: 20060412
  5. CYCLOPHOSPHAMIDE [Suspect]
     Indication: ACUTE LYMPHOCYTIC LEUKAEMIA
     Dosage: 225 MG, QDX5, INTRAVENOUS; 265 MG, QDX5, INTRAVENOUS
     Route: 042
     Dates: start: 20060311, end: 20060315
  6. CYCLOPHOSPHAMIDE [Suspect]
     Indication: ACUTE LYMPHOCYTIC LEUKAEMIA
     Dosage: 225 MG, QDX5, INTRAVENOUS; 265 MG, QDX5, INTRAVENOUS
     Route: 042
     Dates: start: 20060408, end: 20060412
  7. DAPSONE [Concomitant]
  8. NEUPOGEN [Concomitant]
  9. CIPROFLOXACIN [Concomitant]
  10. FLUCONAZOLE [Concomitant]

REACTIONS (7)
  - BK VIRUS INFECTION [None]
  - CYSTITIS [None]
  - CYSTITIS HAEMORRHAGIC [None]
  - FEBRILE NEUTROPENIA [None]
  - GASTROINTESTINAL DISORDER [None]
  - URINARY TRACT INFECTION [None]
  - VIRAL TEST POSITIVE [None]
